FAERS Safety Report 8430339-4 (Version None)
Quarter: 2012Q2

REPORT INFORMATION
  Report Type: 
  Country: None (occurrence: None)
  Receive Date: 20120612
  Receipt Date: 20120605
  Transmission Date: 20120825
  Serious: Yes (Hospitalization)
  Sender: FDA-Public Use
  Company Number: FR-B.I. PHARMACEUTICALS,INC./RIDGEFIELD-2012-FF-00701FF

PATIENT
  Age: 80 Year
  Sex: Male

DRUGS (9)
  1. SECTRAL [Concomitant]
  2. PRADAXA [Suspect]
     Indication: PHLEBITIS
     Dosage: 220 MG
     Route: 048
     Dates: start: 20120525
  3. CAPTOPRIL [Concomitant]
  4. IMOVANE [Concomitant]
  5. EUROBIOL [Concomitant]
  6. NOVOLOG MIX 70/30 [Concomitant]
  7. RAMIPLEX [Concomitant]
  8. OSTRAM [Concomitant]
  9. NITROGLYCERIN [Concomitant]

REACTIONS (1)
  - PULMONARY EMBOLISM [None]
